FAERS Safety Report 7543233-8 (Version None)
Quarter: 2011Q2

REPORT INFORMATION
  Report Type: 
  Country: None (occurrence: None)
  Receive Date: 20110613
  Receipt Date: 20110603
  Transmission Date: 20111010
  Serious: Yes (Other)
  Sender: FDA-Public Use
  Company Number: US-ASTRAZENECA-2010SE22752

PATIENT
  Age: 70 Year
  Sex: Female

DRUGS (17)
  1. HYZAAR [Concomitant]
     Dosage: 100/25 1 IN THE MORNING
  2. LEXAPRO [Concomitant]
     Dosage: 0.5, 1 AT PM
  3. NEXIUM [Suspect]
     Route: 048
  4. AMITIZA [Concomitant]
  5. KLOR-CON [Concomitant]
  6. OXYCONTIN [Concomitant]
  7. SYNTHROID [Concomitant]
  8. NORVASC [Concomitant]
  9. LIPITOR [Concomitant]
  10. PULMICORT [Suspect]
     Dosage: 0.5 MG/2ML, 1 VIAL VIA NEBULIZER TWICE A DAY
     Route: 055
  11. LYRICA [Concomitant]
  12. AMBIEN [Concomitant]
  13. PROAIR HFA [Concomitant]
     Dosage: 108 MCG, 2 PUFFS AS NEEDED
  14. PULMICORT [Suspect]
     Route: 055
  15. SINGULAIR [Concomitant]
  16. OXYCODONE HCL [Concomitant]
  17. EFFERVESCENT POTASSIUM [Concomitant]

REACTIONS (4)
  - MALAISE [None]
  - LUNG NEOPLASM MALIGNANT [None]
  - COUGH [None]
  - DRUG INEFFECTIVE [None]
